FAERS Safety Report 5867571-X (Version None)
Quarter: 2008Q3

REPORT INFORMATION
  Report Type: 
  Country: None (occurrence: None)
  Receive Date: 20080902
  Receipt Date: 20080821
  Transmission Date: 20090109
  Serious: Yes (Life-Threatening, Hospitalization, Other)
  Sender: FDA-Public Use
  Company Number: GB-PFIZER INC-2008070578

PATIENT
  Age: 56 Year
  Sex: Female

DRUGS (5)
  1. HYDROCORTISONE [Suspect]
     Indication: ANAPHYLACTIC REACTION
     Route: 042
  2. RANITIDINE [Suspect]
     Indication: EPIGASTRIC DISCOMFORT
     Route: 042
  3. RANITIDINE [Suspect]
     Indication: PANCREATITIS
  4. EPINEPHRINE [Concomitant]
     Route: 030
  5. OXYGEN [Concomitant]

REACTIONS (3)
  - CARDIAC ARREST [None]
  - DRUG INEFFECTIVE [None]
  - RESPIRATORY ARREST [None]
